FAERS Safety Report 16357673 (Version 1)
Quarter: 2019Q2

REPORT INFORMATION
  Report Type: Spontaneous
  Country: KR (occurrence: KR)
  Receive Date: 20190527
  Receipt Date: 20190527
  Transmission Date: 20190711
  Serious: Yes (Other)
  Sender: FDA-Public Use
  Company Number: KR-009507513-1905KOR008864

PATIENT
  Age: 74 Year
  Sex: Female
  Weight: 56 kg

DRUGS (5)
  1. DESFLURANE. [Concomitant]
     Active Substance: DESFLURANE
     Indication: MAINTENANCE OF ANAESTHESIA
     Dosage: 4-5 VOL %
  2. ROCURONIUM BROMIDE. [Concomitant]
     Active Substance: ROCURONIUM BROMIDE
     Indication: INDUCTION OF ANAESTHESIA
     Dosage: 40 MILLIGRAM
  3. SUGAMMADEX SODIUM [Suspect]
     Active Substance: SUGAMMADEX SODIUM
     Indication: MUSCLE RELAXANT THERAPY
     Dosage: 120 MILLIGRAM, ONCE
     Route: 042
  4. REMIFENTANIL HYDROCHLORIDE. [Concomitant]
     Active Substance: REMIFENTANIL HYDROCHLORIDE
     Indication: MAINTENANCE OF ANAESTHESIA
     Dosage: 0.1-0.2 MCG/KG/MIN
  5. PROPOFOL. [Concomitant]
     Active Substance: PROPOFOL
     Indication: INDUCTION OF ANAESTHESIA
     Dosage: 80 MILLIGRAM

REACTIONS (1)
  - Muscle rigidity [Recovered/Resolved]
